FAERS Safety Report 14803506 (Version 3)
Quarter: 2018Q2

REPORT INFORMATION
  Report Type: Spontaneous
  Country: JP (occurrence: JP)
  Receive Date: 20180425
  Receipt Date: 20180530
  Transmission Date: 20180711
  Serious: Yes (Hospitalization, Other)
  Sender: FDA-Public Use
  Company Number: JP-AMGEN-JPNSP2018055662

PATIENT
  Age: 69 Year
  Sex: Female
  Weight: 45 kg

DRUGS (13)
  1. LOXOPROFEN [Concomitant]
     Active Substance: LOXOPROFEN
     Indication: CANCER PAIN
     Dosage: 60 MG, TID
     Route: 048
     Dates: start: 20150919
  2. CLARITH [Concomitant]
     Active Substance: CLARITHROMYCIN
     Indication: OSTEONECROSIS OF JAW
     Dosage: 200 MG, BID
     Route: 048
     Dates: start: 20180217
  3. OXYCONTIN [Concomitant]
     Active Substance: OXYCODONE HYDROCHLORIDE
     Dosage: 10 MG, BID
     Route: 048
     Dates: start: 20151017
  4. PACLITAXEL. [Concomitant]
     Active Substance: PACLITAXEL
     Indication: METASTASES TO BONE
     Dosage: 118.35 MG, QD
     Route: 041
     Dates: start: 20160607, end: 20180405
  5. RANMARK [Suspect]
     Active Substance: DENOSUMAB
     Indication: METASTASES TO BONE
     Dosage: 120 MG, Q4WK
     Route: 058
     Dates: start: 20151015
  6. DENOTAS [Concomitant]
     Active Substance: CALCIUM CARBONATE\CHOLECALCIFEROL\MAGNESIUM CARBONATE
     Indication: ADVERSE DRUG REACTION
     Dosage: 1 DF, BID
     Route: 048
     Dates: start: 20151015
  7. MAGNESIUM OXIDE. [Concomitant]
     Active Substance: MAGNESIUM OXIDE
     Dosage: UNK
     Route: 065
  8. METOCLOPRAMIDE. [Concomitant]
     Active Substance: METOCLOPRAMIDE
     Dosage: UNK
     Route: 065
  9. DEXART [Suspect]
     Active Substance: DEXAMETHASONE SODIUM PHOSPHATE
     Indication: PREMEDICATION
     Dosage: 6.6 MG, QD
     Route: 041
     Dates: start: 20151204, end: 20180405
  10. AVASTIN [Concomitant]
     Active Substance: BEVACIZUMAB
     Indication: METASTASES TO BONE
     Dosage: 420 MG, QD
     Route: 041
     Dates: start: 20160607, end: 20180405
  11. OXYCONTIN [Concomitant]
     Active Substance: OXYCODONE HYDROCHLORIDE
     Indication: CANCER PAIN
     Dosage: 5 MG, BID
     Route: 048
     Dates: start: 20150919, end: 20151017
  12. LANSOPRAZOLE. [Concomitant]
     Active Substance: LANSOPRAZOLE
     Indication: ADVERSE DRUG REACTION
     Dosage: 15 MG, QD
     Route: 048
     Dates: start: 20151009
  13. OLMETEC [Concomitant]
     Active Substance: OLMESARTAN MEDOXOMIL
     Indication: HYPERTENSION
     Dosage: 40 MG, QD
     Route: 048
     Dates: start: 20171005

REACTIONS (3)
  - Hypertension [Unknown]
  - Atypical femur fracture [Recovering/Resolving]
  - Osteonecrosis of jaw [Unknown]

NARRATIVE: CASE EVENT DATE: 20171015
